FAERS Safety Report 25506557 (Version 1)
Quarter: 2025Q3

REPORT INFORMATION
  Report Type: Spontaneous
  Country: US (occurrence: US)
  Receive Date: 20250702
  Receipt Date: 20250702
  Transmission Date: 20251020
  Serious: No
  Sender: GENMAB
  Company Number: US-GENMAB-2025-01118

PATIENT

DRUGS (1)
  1. EPCORITAMAB [Suspect]
     Active Substance: EPCORITAMAB
     Indication: Follicular lymphoma
     Route: 065

REACTIONS (2)
  - Rash [Unknown]
  - Off label use [Recovered/Resolved]
